FAERS Safety Report 5552270-4 (Version None)
Quarter: 2007Q4

REPORT INFORMATION
  Report Type: 
  Country: None (occurrence: None)
  Receive Date: 20071130
  Receipt Date: 20070820
  Transmission Date: 20080405
  Serious: No
  Sender: FDA-Public Use
  Company Number: US20070800492

PATIENT
  Age: 47 Year
  Sex: Female

DRUGS (7)
  1. BYETTA [Suspect]
     Indication: BLOOD GLUCOSE INCREASED
     Dosage: 5 UG, 2/D, SUBCUTANEOUS; 10 UG, 2/D, SUBCUTANEOUS;  10 UG, OTHER, SUBCUTANEOUS
     Route: 058
     Dates: start: 20070601, end: 20070701
  2. BYETTA [Suspect]
     Indication: BLOOD GLUCOSE INCREASED
     Dosage: 5 UG, 2/D, SUBCUTANEOUS; 10 UG, 2/D, SUBCUTANEOUS;  10 UG, OTHER, SUBCUTANEOUS
     Route: 058
     Dates: start: 20070801, end: 20070801
  3. BYETTA [Suspect]
     Indication: BLOOD GLUCOSE INCREASED
     Dosage: 5 UG, 2/D, SUBCUTANEOUS; 10 UG, 2/D, SUBCUTANEOUS;  10 UG, OTHER, SUBCUTANEOUS
     Route: 058
     Dates: start: 20070701
  4. GLUCOPHAGE [Concomitant]
  5. GLYBURIDE [Concomitant]
  6. NORVASC [Concomitant]
  7. HYZAAR [Concomitant]

REACTIONS (4)
  - ABDOMINAL DISTENSION [None]
  - ACCIDENTAL OVERDOSE [None]
  - INCORRECT DOSE ADMINISTERED [None]
  - VOMITING [None]
